FAERS Safety Report 6337159-5 (Version None)
Quarter: 2009Q3

REPORT INFORMATION
  Report Type: 
  Country: None (occurrence: None)
  Receive Date: 20090831
  Receipt Date: 20090819
  Transmission Date: 20100115
  Serious: Yes (Life-Threatening, Other)
  Sender: FDA-Public Use
  Company Number: MSTR-NO-0908S-0145

PATIENT
  Age: 63 Year
  Sex: Female
  Weight: 35 kg

DRUGS (1)
  1. METASTRON [Suspect]
     Indication: METASTATIC PAIN
     Dosage: SINGLE DISE, I.V.
     Route: 042
     Dates: start: 20081118, end: 20081118

REACTIONS (15)
  - ANAEMIA [None]
  - BONE MARROW FAILURE [None]
  - CONDITION AGGRAVATED [None]
  - DECREASED APPETITE [None]
  - DEPRESSED LEVEL OF CONSCIOUSNESS [None]
  - DIARRHOEA [None]
  - EPISTAXIS [None]
  - GINGIVAL BLEEDING [None]
  - MALAISE [None]
  - MOUTH HAEMORRHAGE [None]
  - NAUSEA [None]
  - PAIN [None]
  - PLATELET COUNT DECREASED [None]
  - PLEURAL EFFUSION [None]
  - TINNITUS [None]
